FAERS Safety Report 9678754 (Version 2)
Quarter: 2014Q1

REPORT INFORMATION
  Report Type: Spontaneous
  Country: FR (occurrence: FR)
  Receive Date: 20131108
  Receipt Date: 20140228
  Transmission Date: 20141002
  Serious: Yes (Hospitalization, Other)
  Sender: FDA-Public Use
  Company Number: FR-BRISTOL-MYERS SQUIBB COMPANY-19721703

PATIENT
  Age: 1 Day
  Sex: Male
  Weight: 3.26 kg

DRUGS (4)
  1. ABILIFY TABS 10 MG [Suspect]
     Route: 064
     Dates: start: 2012, end: 20130708
  2. SEROPLEX [Suspect]
     Dosage: 20MG FILM COATED TABS
     Route: 064
     Dates: start: 2012, end: 20130708
  3. SERESTA [Suspect]
     Dosage: DOSE VALUE:50MG,20MG ?SCORED TAB
     Route: 064
     Dates: start: 2012, end: 20130708
  4. TERCIAN [Suspect]
     Dosage: FILM COATED TABS,DOSE VALUE 12.5MG
     Route: 064
     Dates: start: 2012, end: 20130708

REACTIONS (3)
  - Drug withdrawal syndrome neonatal [Recovered/Resolved]
  - Neonatal hypoxia [Recovered/Resolved]
  - Tremor [Recovered/Resolved]
